FAERS Safety Report 21042662 (Version 2)
Quarter: 2022Q3

REPORT INFORMATION
  Report Type: Spontaneous
  Country: US (occurrence: US)
  Receive Date: 20220705
  Receipt Date: 20220919
  Transmission Date: 20221027
  Serious: No
  Sender: FDA-Public Use
  Company Number: US-MICRO LABS LIMITED-ML2022-03069

PATIENT
  Age: 53 Year
  Sex: Male

DRUGS (2)
  1. TRAVOPROST [Suspect]
     Active Substance: TRAVOPROST
     Indication: Glaucoma
     Dosage: ONE DROP IN EACH EYE; AT NIGHT
     Route: 047
  2. TRAVOPROST [Suspect]
     Active Substance: TRAVOPROST

REACTIONS (5)
  - Product dose omission issue [Unknown]
  - Product packaging quantity issue [Unknown]
  - Impaired work ability [Unknown]
  - Visual impairment [Unknown]
  - Eye pain [Unknown]
